FAERS Safety Report 8963867 (Version 1)
Quarter: 2012Q4

REPORT INFORMATION
  Report Type: 
  Country: US (occurrence: US)
  Receive Date: 20121214
  Receipt Date: 20121214
  Transmission Date: 20130627
  Serious: Yes (Hospitalization)
  Sender: FDA-Public Use
  Company Number: US-PFIZER INC-2012313249

PATIENT
  Age: 65 Year
  Sex: Female

DRUGS (1)
  1. VFEND [Suspect]
     Indication: LUNG TRANSPLANT
     Dosage: 200 mg, BID

REACTIONS (1)
  - Infection [Unknown]
